FAERS Safety Report 15096974 (Version 3)
Quarter: 2018Q3

REPORT INFORMATION
  Report Type: Spontaneous
  Country: IT (occurrence: IT)
  Receive Date: 20180702
  Receipt Date: 20180725
  Transmission Date: 20181010
  Serious: Yes (Death, Other)
  Sender: FDA-Public Use
  Company Number: IT-BAYER-2018-117972

PATIENT
  Age: 67 Year
  Sex: Male

DRUGS (2)
  1. REGORAFENIB. [Suspect]
     Active Substance: REGORAFENIB
     Indication: METASTASES TO LIVER
  2. REGORAFENIB. [Suspect]
     Active Substance: REGORAFENIB
     Indication: COLON CANCER
     Dosage: 160 MG, QD
     Dates: start: 201508

REACTIONS (7)
  - Metastases to central nervous system [Fatal]
  - Palmar-plantar erythrodysaesthesia syndrome [None]
  - Headache [None]
  - Aphasia [None]
  - Dizziness [None]
  - Blood lactate dehydrogenase increased [None]
  - Hepatic enzyme increased [None]

NARRATIVE: CASE EVENT DATE: 201609
